FAERS Safety Report 7383422-9 (Version None)
Quarter: 2011Q1

REPORT INFORMATION
  Report Type: 
  Country: None (occurrence: None)
  Receive Date: 20110328
  Receipt Date: 20110314
  Transmission Date: 20110831
  Serious: Yes (Other)
  Sender: FDA-Public Use
  Company Number: PHHY2011US14129

PATIENT
  Sex: Female

DRUGS (12)
  1. DIOVAN [Suspect]
     Dosage: 320 MG, UNK
     Dates: start: 20011101
  2. DILTIAZEM [Concomitant]
     Dosage: 240 MG, UNK
  3. CHLORTHALIDONE [Concomitant]
     Dosage: 25 MG, UNK
  4. POTASSIUM CHLORIDE [Concomitant]
  5. VESICARE [Concomitant]
  6. PRAVASTATIN [Concomitant]
     Dosage: 40 MG, UNK
  7. SERTRALINE HYDROCHLORIDE [Concomitant]
     Dosage: 100 MG, UNK
  8. ASPIRIN [Concomitant]
     Dosage: 81 MG, UNK
  9. VITAMIN D [Concomitant]
  10. OMEPRAZOLE [Concomitant]
  11. UTRIA C [Concomitant]
  12. LUMIGAN [Concomitant]

REACTIONS (3)
  - BLOOD PRESSURE FLUCTUATION [None]
  - RENAL CANCER [None]
  - KIDNEY INFECTION [None]
